FAERS Safety Report 8810015 (Version 2)
Quarter: 2013Q4

REPORT INFORMATION
  Report Type: Spontaneous
  Country: GB (occurrence: GB)
  Receive Date: 20120926
  Receipt Date: 20131213
  Transmission Date: 20140711
  Serious: Yes (Hospitalization, Other)
  Sender: FDA-Public Use
  Company Number: GB-JHP PHARMACEUTICALS, LLC-JHP201200478

PATIENT
  Age: 25 Year
  Sex: Male

DRUGS (6)
  1. KETALAR [Suspect]
     Indication: SUBSTANCE USE
     Dosage: UNK
     Route: 048
  2. KETALAR [Suspect]
     Dosage: 1 G 2-3 TIMES/WEEK
     Route: 048
  3. RITONAVIR [Interacting]
     Indication: ANTIRETROVIRAL THERAPY
  4. EMTRICITABINE W/TENOFOVIR [Interacting]
     Indication: ANTIRETROVIRAL THERAPY
  5. LOPINAVIR [Concomitant]
     Indication: ANTIRETROVIRAL THERAPY
  6. COTRIMOXAZOLE [Concomitant]
     Indication: ANTIFUNGAL PROPHYLAXIS

REACTIONS (2)
  - Hepatobiliary disease [Recovered/Resolved]
  - Drug interaction [Recovered/Resolved]
